FAERS Safety Report 8047901-3 (Version None)
Quarter: 2012Q1

REPORT INFORMATION
  Report Type: 
  Country: None (occurrence: None)
  Receive Date: 20120116
  Receipt Date: 20120110
  Transmission Date: 20120608
  Serious: Yes (Hospitalization, Other)
  Sender: FDA-Public Use
  Company Number: US-ABBOTT-11P-163-0862622-00

PATIENT
  Sex: Male
  Weight: 62.198 kg

DRUGS (12)
  1. VORICONAZALE [Concomitant]
     Indication: BRONCHOPULMONARY ASPERGILLOSIS
  2. LUPRON DEPOT [Suspect]
     Indication: PROSTATE CANCER
     Dates: start: 20110607, end: 20110607
  3. METFORMIN HCL [Concomitant]
     Indication: DIABETES MELLITUS
  4. ASPIRIN [Concomitant]
     Indication: PRODUCT USED FOR UNKNOWN INDICATION
  5. NIACIN (OVER THE COUNTER) [Concomitant]
     Indication: SUPPLEMENTATION THERAPY
  6. ASPIRIN [Concomitant]
     Route: 048
  7. FISH OIL [Concomitant]
     Indication: PRODUCT USED FOR UNKNOWN INDICATION
  8. LUPRON DEPOT [Suspect]
     Indication: PROSTATE CANCER
     Route: 050
     Dates: start: 20110701
  9. ZORTRESS [Concomitant]
     Indication: HEART TRANSPLANT
  10. PROGRAF [Concomitant]
     Indication: HEART TRANSPLANT
  11. PROVACHOL [Concomitant]
     Indication: PRODUCT USED FOR UNKNOWN INDICATION
  12. VITAMIN D [Concomitant]
     Indication: PRODUCT USED FOR UNKNOWN INDICATION

REACTIONS (4)
  - HEADACHE [None]
  - DIARRHOEA [None]
  - ABDOMINAL PAIN [None]
  - TEMPORAL ARTERITIS [None]
